FAERS Safety Report 8278035-0 (Version None)
Quarter: 2012Q2

REPORT INFORMATION
  Report Type: 
  Country: None (occurrence: None)
  Receive Date: 20120412
  Receipt Date: 20120331
  Transmission Date: 20120825
  Serious: Yes (Hospitalization)
  Sender: FDA-Public Use
  Company Number: IT-ROCHE-787551

PATIENT
  Sex: Female
  Weight: 60 kg

DRUGS (6)
  1. PLAQUENIL [Concomitant]
     Route: 048
  2. PREDNISONE TAB [Concomitant]
     Route: 048
  3. LEFLUNOMIDE [Suspect]
     Indication: RHEUMATOID ARTHRITIS
     Route: 048
     Dates: start: 20101129, end: 20110606
  4. HYDROXYCHLOROQUINE SULFATE [Concomitant]
  5. MABTHERA [Suspect]
     Indication: RHEUMATOID ARTHRITIS
     Dosage: DOSE:1 GRAM TWICE FOR EACH CYCLE
     Route: 042
     Dates: start: 20090204, end: 20100825
  6. ETANERCEPT [Suspect]
     Indication: RHEUMATOID ARTHRITIS
     Dosage: FREQUENCY WEEKLY
     Route: 058
     Dates: start: 20101129, end: 20110606

REACTIONS (3)
  - SQUAMOUS CELL CARCINOMA OF THE CERVIX [None]
  - VAGINAL HAEMORRHAGE [None]
  - PELVIC PAIN [None]
